FAERS Safety Report 26128822 (Version 1)
Quarter: 2025Q4

REPORT INFORMATION
  Report Type: Spontaneous
  Country: US (occurrence: US)
  Receive Date: 20251208
  Receipt Date: 20251208
  Transmission Date: 20260117
  Serious: No
  Sender: AMNEAL
  Company Number: US-AMNEAL PHARMACEUTICALS-2025-AMRX-03998

PATIENT
  Age: 0 Year
  Sex: Female
  Weight: 6.6 kg

DRUGS (1)
  1. PROPOFOL [Suspect]
     Active Substance: PROPOFOL
     Indication: Anaesthesia procedure
     Dosage: 200-300 MCG/KG/MIN PLUS BOLUS DOSES
     Route: 042
     Dates: start: 20251009, end: 20251009

REACTIONS (2)
  - Anaesthetic complication [Recovered/Resolved]
  - Product quality issue [Unknown]

NARRATIVE: CASE EVENT DATE: 20251009
